FAERS Safety Report 17551865 (Version 1)
Quarter: 2020Q1

REPORT INFORMATION
  Report Type: Spontaneous
  Country: FR (occurrence: FR)
  Receive Date: 20200317
  Receipt Date: 20200317
  Transmission Date: 20200409
  Serious: Yes (Hospitalization)
  Sender: FDA-Public Use
  Company Number: FR-MYLANLABS-2020M1027639

PATIENT
  Age: 94 Year
  Sex: Female
  Weight: 69 kg

DRUGS (6)
  1. DACUDOSES [Concomitant]
     Active Substance: BORIC ACID\SODIUM BORATE
     Dosage: 3 DOSAGE FORM, QD
     Route: 047
  2. TRAMADOL. [Suspect]
     Active Substance: TRAMADOL
     Indication: PRODUCT USED FOR UNKNOWN INDICATION
     Dosage: 3 DOSAGE FORM, QD
     Route: 048
     Dates: start: 201907, end: 20190827
  3. LEXOMIL [Suspect]
     Active Substance: BROMAZEPAM
     Indication: AGITATION
     Dosage: 0.75 DOSAGE FORM, QD
     Route: 048
     Dates: start: 20190813, end: 20190827
  4. INSULATARD                         /00646002/ [Concomitant]
     Active Substance: INSULIN HUMAN
     Dosage: 6 INTERNATIONAL UNIT, QD
     Route: 058
  5. CROMABAK [Concomitant]
     Active Substance: CROMOLYN SODIUM
     Dosage: 3 GTT DROPS, QD
     Route: 047
  6. PREVISCAN                          /00789001/ [Concomitant]
     Active Substance: FLUINDIONE
     Dosage: 0.5 DOSAGE FORM, Q2D
     Route: 048

REACTIONS (4)
  - Condition aggravated [Recovered/Resolved]
  - Agitation [Recovered/Resolved]
  - Coma [Recovered/Resolved]
  - Hallucination [Recovered/Resolved]

NARRATIVE: CASE EVENT DATE: 20190827
